FAERS Safety Report 25077484 (Version 2)
Quarter: 2025Q1

REPORT INFORMATION
  Report Type: Spontaneous
  Country: ES (occurrence: ES)
  Receive Date: 20250314
  Receipt Date: 20250324
  Transmission Date: 20250408
  Serious: No
  Sender: UCB
  Company Number: ES-UCBSA-2025013824

PATIENT
  Age: 60 Year
  Sex: Female

DRUGS (3)
  1. NEUPRO [Suspect]
     Active Substance: ROTIGOTINE
     Indication: Parkinson^s disease
  2. NEUPRO [Suspect]
     Active Substance: ROTIGOTINE
  3. NEUPRO [Suspect]
     Active Substance: ROTIGOTINE
     Dosage: 6 MILLIGRAM, ONCE DAILY (QD)
     Route: 062

REACTIONS (4)
  - Erythema [Unknown]
  - Skin irritation [Unknown]
  - Product adhesion issue [Unknown]
  - Incorrect dose administered [Unknown]
